FAERS Safety Report 21842228 (Version 2)
Quarter: 2023Q1

REPORT INFORMATION
  Report Type: Report from Study
  Country: US (occurrence: None)
  Receive Date: 20230110
  Receipt Date: 20230125
  Transmission Date: 20230418
  Serious: Yes (Other)
  Sender: FDA-Public Use
  Company Number: US-ROCHE-3258046

PATIENT
  Age: 12 Year
  Sex: Female
  Weight: 38.9 kg

DRUGS (4)
  1. OMALIZUMAB [Suspect]
     Active Substance: OMALIZUMAB
     Indication: Food allergy
     Route: 058
     Dates: start: 20220219, end: 20220701
  2. OMALIZUMAB [Suspect]
     Active Substance: OMALIZUMAB
     Indication: Food allergy
     Route: 065
     Dates: start: 20220729, end: 20220922
  3. NORFLURANE [Concomitant]
     Active Substance: NORFLURANE
     Indication: Local anaesthesia
     Route: 061
     Dates: start: 20211218
  4. ALBUTEROL SULFATE [Concomitant]
     Active Substance: ALBUTEROL SULFATE
     Indication: Asthma
     Dosage: 1 PUFF
     Route: 048
     Dates: start: 202204

REACTIONS (1)
  - Nausea [Recovered/Resolved]

NARRATIVE: CASE EVENT DATE: 20220922
